FAERS Safety Report 4972524-X (Version None)
Quarter: 2006Q2

REPORT INFORMATION
  Report Type: 
  Country: None (occurrence: None)
  Receive Date: 20060413
  Receipt Date: 20060301
  Transmission Date: 20061013
  Serious: Yes (Hospitalization)
  Sender: FDA-Public Use
  Company Number: US-MERCK-0603USA00480

PATIENT
  Age: 47 Year
  Sex: Male
  Weight: 83 kg

DRUGS (8)
  1. VIOXX [Suspect]
     Indication: NECK PAIN
     Route: 048
     Dates: start: 20020101, end: 20030101
  2. VIOXX [Suspect]
     Indication: BACK PAIN
     Route: 048
     Dates: start: 20020101, end: 20030101
  3. ADVIL [Concomitant]
     Route: 065
  4. DILAUDID [Concomitant]
     Indication: PAIN
     Route: 065
  5. ASPIRIN [Concomitant]
     Route: 048
  6. CELEBREX [Concomitant]
     Route: 048
  7. FLEXERIL [Concomitant]
     Route: 048
  8. TAGAMET [Concomitant]
     Route: 048

REACTIONS (2)
  - INTERVERTEBRAL DISC PROTRUSION [None]
  - MYOCARDIAL INFARCTION [None]
